FAERS Safety Report 8538289-X (Version None)
Quarter: 2012Q3

REPORT INFORMATION
  Report Type: 
  Country: None (occurrence: None)
  Receive Date: 20120726
  Receipt Date: 20120716
  Transmission Date: 20120928
  Serious: Yes (Hospitalization)
  Sender: FDA-Public Use
  Company Number: US-BIOGENIDEC-2012BI024226

PATIENT
  Age: 55 Year
  Sex: Female

DRUGS (6)
  1. AVONEX [Suspect]
     Indication: MULTIPLE SCLEROSIS
     Route: 030
  2. AVONEX [Suspect]
     Route: 030
     Dates: start: 20120501, end: 20120101
  3. AVONEX [Suspect]
     Route: 030
     Dates: start: 20120612
  4. AVONEX [Suspect]
     Route: 030
     Dates: start: 20120401, end: 20120401
  5. AVONEX [Suspect]
     Route: 030
     Dates: start: 20030101, end: 20080121
  6. TYSABRI [Concomitant]
     Indication: MULTIPLE SCLEROSIS
     Route: 042

REACTIONS (3)
  - MULTIPLE SCLEROSIS RELAPSE [None]
  - STRESS [None]
  - FALL [None]
